FAERS Safety Report 19456829 (Version 1)
Quarter: 2021Q2

REPORT INFORMATION
  Report Type: Spontaneous
  Country: DE (occurrence: DE)
  Receive Date: 20210624
  Receipt Date: 20210624
  Transmission Date: 20210717
  Serious: Yes (Other)
  Sender: FDA-Public Use
  Company Number: DE-TEVA-2021-DE-1924688

PATIENT

DRUGS (3)
  1. PHENOBARBITAL. [Interacting]
     Active Substance: PHENOBARBITAL
     Indication: PARTIAL SEIZURES
     Route: 065
  2. LEVETIRACETAM. [Suspect]
     Active Substance: LEVETIRACETAM
     Indication: PARTIAL SEIZURES
     Route: 065
  3. PERAMPANEL [Interacting]
     Active Substance: PERAMPANEL
     Indication: PARTIAL SEIZURES
     Dosage: 14 MILLIGRAM DAILY; AT BEDTIME
     Route: 048

REACTIONS (3)
  - Drug clearance increased [Unknown]
  - Drug interaction [Unknown]
  - Drug ineffective [Unknown]
